FAERS Safety Report 8933107 (Version 2)
Quarter: 2012Q4

REPORT INFORMATION
  Report Type: 
  Country: US (occurrence: US)
  Receive Date: 20121128
  Receipt Date: 20121212
  Transmission Date: 20130627
  Serious: Yes (Hospitalization, Other)
  Sender: FDA-Public Use
  Company Number: CHPA2012US023952

PATIENT
  Age: 77 Year
  Sex: Female

DRUGS (2)
  1. VOLTAREN GEL [Suspect]
     Indication: ARTHRITIS
     Dosage: Unk, Unk
     Route: 061
     Dates: start: 2011
  2. COUMADIN [Suspect]
     Indication: ATRIAL FIBRILLATION
     Dosage: Unk, Unk
     Dates: start: 201210

REACTIONS (3)
  - Haematochezia [Recovered/Resolved]
  - Drug level increased [Recovered/Resolved]
  - Drug administered at inappropriate site [Unknown]
